FAERS Safety Report 16526652 (Version 3)
Quarter: 2021Q3

REPORT INFORMATION
  Report Type: Other
  Country: CA (occurrence: CA)
  Receive Date: 20190704
  Receipt Date: 20210709
  Transmission Date: 20211014
  Serious: Yes (Hospitalization, Other)
  Sender: FDA-Public Use
  Company Number: CA-APOTEX-2019AP017410

PATIENT
  Age: 76 Year
  Sex: Male

DRUGS (30)
  1. ABRAXANE [Suspect]
     Active Substance: PACLITAXEL
     Dosage: 217.5 MILLIGRAM, Q.M.T.
     Route: 041
  2. TICILIMUMAB [Suspect]
     Active Substance: TREMELIMUMAB
     Indication: PANCREATIC CARCINOMA
     Dosage: 75 MG, Q.WK.
     Route: 041
  3. DURVALUMAB. [Suspect]
     Active Substance: DURVALUMAB
     Dosage: UNK
     Route: 041
  4. MS CONTIN [Concomitant]
     Active Substance: MORPHINE SULFATE
     Indication: GASTROINTESTINAL DISORDER
  5. OXYCODONE [Concomitant]
     Active Substance: OXYCODONE
     Indication: GASTROINTESTINAL DISORDER
  6. ACETAMINOPHEN. [Concomitant]
     Active Substance: ACETAMINOPHEN
     Indication: GASTROINTESTINAL DISORDER
     Route: 065
  7. MORPHINE [Concomitant]
     Active Substance: MORPHINE
     Indication: ABDOMINAL PAIN
  8. MS CONTIN [Concomitant]
     Active Substance: MORPHINE SULFATE
     Indication: ABDOMINAL PAIN
     Dosage: UNK
     Route: 065
  9. PANTOPRAZOLE [Concomitant]
     Active Substance: PANTOPRAZOLE
     Indication: GASTRITIS
     Dosage: UNK
     Route: 065
  10. ABRAXANE [Suspect]
     Active Substance: PACLITAXEL
     Indication: PANCREATIC CARCINOMA METASTATIC
     Dosage: 217.5 MG, CYCLICAL
     Route: 041
  11. TYLENOL [Concomitant]
     Active Substance: ACETAMINOPHEN
     Indication: ABDOMINAL PAIN
  12. DURVALUMAB. [Suspect]
     Active Substance: DURVALUMAB
     Indication: PANCREATIC CARCINOMA METASTATIC
     Dosage: 1500 MG, CYCLICAL
     Route: 041
  13. TAMSULOSIN [Concomitant]
     Active Substance: TAMSULOSIN
     Indication: GASTRITIS
  14. CETIRIZINE [Concomitant]
     Active Substance: CETIRIZINE HYDROCHLORIDE
     Indication: RASH
     Dosage: UNK
     Route: 065
  15. DURVALUMAB. [Suspect]
     Active Substance: DURVALUMAB
     Dosage: 1500 MILLIGRAM, Q.M.T.
     Route: 041
  16. OXYCODONE [Concomitant]
     Active Substance: OXYCODONE
     Indication: ABDOMINAL PAIN
  17. PANTOPRAZOLE [Concomitant]
     Active Substance: PANTOPRAZOLE
     Indication: GASTROOESOPHAGEAL REFLUX DISEASE
  18. ACETAMINOPHEN. [Concomitant]
     Active Substance: ACETAMINOPHEN
     Indication: ABDOMINAL PAIN
  19. TICILIMUMAB [Suspect]
     Active Substance: TREMELIMUMAB
     Indication: PANCREATIC CARCINOMA METASTATIC
  20. OXYCODONE [Concomitant]
     Active Substance: OXYCODONE
     Indication: PROPHYLAXIS
     Dosage: UNK
     Route: 065
  21. CEFTRIAXONE. [Concomitant]
     Active Substance: CEFTRIAXONE
     Indication: PYREXIA
     Dosage: UNK
     Route: 065
  22. SODIUM CHLORIDE. [Concomitant]
     Active Substance: SODIUM CHLORIDE
     Indication: PYREXIA
     Dosage: UNK
     Route: 065
  23. ABRAXANE [Suspect]
     Active Substance: PACLITAXEL
     Indication: PANCREATIC CARCINOMA
     Dosage: 217.5 MG, ONE EVERY FOUR WEEKS
     Route: 041
  24. DURVALUMAB. [Suspect]
     Active Substance: DURVALUMAB
     Indication: PANCREATIC CARCINOMA
     Dosage: 1500 MG, ONE EVERY FOUR WEEKS
     Route: 041
  25. MORPHINE [Concomitant]
     Active Substance: MORPHINE
     Indication: GASTROINTESTINAL DISORDER
     Dosage: UNK
     Route: 065
  26. TYLENOL [Concomitant]
     Active Substance: ACETAMINOPHEN
     Indication: GASTROINTESTINAL DISORDER
     Dosage: UNK
     Route: 065
  27. GEMCITABINE. [Suspect]
     Active Substance: GEMCITABINE
     Indication: PANCREATIC CARCINOMA
     Dosage: 1729 MILLIGRAM
     Route: 041
  28. GEMCITABINE. [Suspect]
     Active Substance: GEMCITABINE
     Indication: PANCREATIC CARCINOMA METASTATIC
  29. PANTOPRAZOLE [Concomitant]
     Active Substance: PANTOPRAZOLE
     Indication: DYSPEPSIA
  30. TAMSULOSIN [Concomitant]
     Active Substance: TAMSULOSIN
     Indication: BENIGN PROSTATIC HYPERPLASIA
     Dosage: UNK
     Route: 065

REACTIONS (3)
  - Pyrexia [Recovered/Resolved]
  - Sepsis [Recovered/Resolved]
  - Presyncope [Recovered/Resolved]
